FAERS Safety Report 17846434 (Version 2)
Quarter: 2021Q3

REPORT INFORMATION
  Report Type: Spontaneous
  Country: CA (occurrence: CA)
  Receive Date: 20200601
  Receipt Date: 20210911
  Transmission Date: 20211014
  Serious: Yes (Hospitalization)
  Sender: FDA-Public Use
  Company Number: CA-ROCHE-2611957

PATIENT
  Age: 77 Year
  Sex: Male

DRUGS (20)
  1. BEVACIZUMAB. [Suspect]
     Active Substance: BEVACIZUMAB
     Indication: COLORECTAL CANCER METASTATIC
     Dosage: CYCLICAL
     Route: 042
  2. LEUCOVORIN. [Suspect]
     Active Substance: LEUCOVORIN
     Route: 042
  3. AMLODIPINE [Concomitant]
     Active Substance: AMLODIPINE BESYLATE
  4. SITAGLIPTIN [Concomitant]
     Active Substance: SITAGLIPTIN
  5. PANTOPRAZOLE [Concomitant]
     Active Substance: PANTOPRAZOLE
  6. 5?FLUOROURACIL [Suspect]
     Active Substance: FLUOROURACIL
     Dosage: THERAPY DURATION: 71.0 DAYS
     Route: 040
  7. ALPRAZOLAM. [Concomitant]
     Active Substance: ALPRAZOLAM
  8. DUTASTERIDE. [Concomitant]
     Active Substance: DUTASTERIDE
  9. TAMSULOSIN [Concomitant]
     Active Substance: TAMSULOSIN
  10. BEVACIZUMAB. [Suspect]
     Active Substance: BEVACIZUMAB
     Route: 042
  11. 5?FLUOROURACIL [Suspect]
     Active Substance: FLUOROURACIL
     Indication: COLORECTAL CANCER METASTATIC
     Route: 040
  12. 5?FLUOROURACIL [Suspect]
     Active Substance: FLUOROURACIL
     Route: 042
  13. IRINOTECAN [Suspect]
     Active Substance: IRINOTECAN
     Route: 042
  14. OLANZAPINE. [Concomitant]
     Active Substance: OLANZAPINE
  15. STEMETIL [Concomitant]
     Active Substance: PROCHLORPERAZINE
  16. METFORMIN HYDROCHLORIDE. [Concomitant]
     Active Substance: METFORMIN HYDROCHLORIDE
  17. LEUCOVORIN. [Suspect]
     Active Substance: LEUCOVORIN
     Indication: COLORECTAL CANCER METASTATIC
     Route: 042
  18. IRINOTECAN [Suspect]
     Active Substance: IRINOTECAN
     Indication: COLORECTAL CANCER METASTATIC
     Route: 042
  19. INSULIN ASPART [Concomitant]
     Active Substance: INSULIN ASPART
  20. PERINDOPRIL [Concomitant]
     Active Substance: PERINDOPRIL

REACTIONS (1)
  - Small intestinal obstruction [Recovered/Resolved]
